FAERS Safety Report 6256172-X (Version None)
Quarter: 2009Q3

REPORT INFORMATION
  Report Type: 
  Country: None (occurrence: None)
  Receive Date: 20090706
  Receipt Date: 20090603
  Transmission Date: 20100115
  Serious: No
  Sender: FDA-Public Use
  Company Number: US-BAYER-200918297NA

PATIENT
  Age: 60 Year
  Sex: Male
  Weight: 99 kg

DRUGS (6)
  1. LEVITRA [Suspect]
     Indication: ERECTILE DYSFUNCTION
     Dosage: TOTAL DAILY DOSE: 20 MG  UNIT DOSE: 20 MG
     Dates: start: 20090413
  2. LEVITRA [Suspect]
     Dosage: TOTAL DAILY DOSE: 20 MG  UNIT DOSE: 20 MG
     Dates: start: 20090414
  3. VALIUM [Concomitant]
     Dosage: TOTAL DAILY DOSE: 200 MG  UNIT DOSE: 50 MG
  4. VICODIN [Concomitant]
     Dosage: UNIT DOSE: 500 MG
  5. OXYCONTIN [Concomitant]
     Dosage: UNIT DOSE: 10 MG
  6. LYRICA [Concomitant]
     Dosage: UNIT DOSE: 200 MG

REACTIONS (2)
  - ADVERSE EVENT [None]
  - POLLAKIURIA [None]
